FAERS Safety Report 16922989 (Version 2)
Quarter: 2019Q4

REPORT INFORMATION
  Report Type: Spontaneous
  Country: FR (occurrence: FR)
  Receive Date: 20191016
  Receipt Date: 20191224
  Transmission Date: 20200122
  Serious: Yes (Other)
  Sender: FDA-Public Use
  Company Number: FR-TEVA-2019-FR-1121258

PATIENT
  Age: 38 Year
  Sex: Female

DRUGS (8)
  1. ALCOOL [Suspect]
     Active Substance: ALCOHOL
     Indication: ALCOHOL USE
     Dosage: 1/2 BOTTLE OF VODKA
     Route: 065
     Dates: start: 20190706, end: 20190706
  2. KETOPROFENE [Suspect]
     Active Substance: KETOPROFEN
     Indication: PRODUCT USED FOR UNKNOWN INDICATION
     Dosage: 10 CP; 10 DF, 1 TOTAL
     Route: 048
     Dates: start: 20190706, end: 20190706
  3. VERATRAN [Suspect]
     Active Substance: CLOTIAZEPAM
     Indication: PRODUCT USED FOR UNKNOWN INDICATION
     Dosage: 11 CP; 11 DF
     Route: 048
     Dates: start: 20190706, end: 20190706
  4. TABAC (POUDRE DE) [Suspect]
     Active Substance: TOBACCO LEAF
     Indication: TOBACCO USER
     Dosage: 20 CIGARETTES A DAY
     Route: 055
  5. METHADONE AP-HP [Suspect]
     Active Substance: METHADONE HYDROCHLORIDE
     Indication: PRODUCT USED FOR UNKNOWN INDICATION
     Dosage: 42 DF
     Route: 048
     Dates: start: 20190706, end: 20190706
  6. HEROIN [Suspect]
     Active Substance: DIAMORPHINE
     Indication: DRUG DEPENDENCE
     Dosage: UNSPECIFIED
     Route: 045
  7. ZOPICLONE [Suspect]
     Active Substance: ZOPICLONE
     Indication: PRODUCT USED FOR UNKNOWN INDICATION
     Dosage: 13 DF, 1 TOTAL
     Route: 048
     Dates: start: 20190706, end: 20190706
  8. CANNABIS [Suspect]
     Active Substance: CANNABIS SATIVA SUBSP. INDICA TOP
     Indication: DRUG ABUSE
     Dosage: NON APPLICABLE
     Route: 065

REACTIONS (5)
  - Toxicity to various agents [Recovered/Resolved]
  - Drug dependence [Not Recovered/Not Resolved]
  - Somnolence [Recovered/Resolved]
  - Agitation [Recovered/Resolved]
  - Alcohol abuse [Not Recovered/Not Resolved]

NARRATIVE: CASE EVENT DATE: 20190706
